FAERS Safety Report 17152376 (Version 1)
Quarter: 2019Q4

REPORT INFORMATION
  Report Type: Spontaneous
  Country: US (occurrence: US)
  Receive Date: 20191213
  Receipt Date: 20191213
  Transmission Date: 20200122
  Serious: No
  Sender: FDA-Public Use
  Company Number: US-ENDO PHARMACEUTICALS INC-2019-100309

PATIENT
  Sex: Male
  Weight: 83.9 kg

DRUGS (5)
  1. XIAFLEX [Suspect]
     Active Substance: COLLAGENASE CLOSTRIDIUM HISTOLYTICUM
     Dosage: UNK FIRST CYCLE; INJECTION 1
     Route: 026
     Dates: start: 20180924
  2. XIAFLEX [Suspect]
     Active Substance: COLLAGENASE CLOSTRIDIUM HISTOLYTICUM
     Dosage: UNK FIRST CYCLE; SECOND INJECTION
     Route: 026
     Dates: start: 20180927
  3. XIAFLEX [Suspect]
     Active Substance: COLLAGENASE CLOSTRIDIUM HISTOLYTICUM
     Dosage: UNK UNKNOWN, SECOND CYCLE: INJECTION 2
     Route: 026
     Dates: start: 20181129
  4. XIAFLEX [Suspect]
     Active Substance: COLLAGENASE CLOSTRIDIUM HISTOLYTICUM
     Indication: PEYRONIE^S DISEASE
     Dosage: UNK UNKNOWN, THIRD CYCLE: INJECTION 1
     Route: 026
     Dates: start: 20190128
  5. XIAFLEX [Suspect]
     Active Substance: COLLAGENASE CLOSTRIDIUM HISTOLYTICUM
     Dosage: UNK SECOND CYCLE; INJECTION 1
     Route: 026
     Dates: start: 20181112

REACTIONS (4)
  - Haematoma [Recovered/Resolved]
  - Penile haematoma [Not Recovered/Not Resolved]
  - Haemorrhage [Recovered/Resolved]
  - Incorrect product administration duration [Unknown]

NARRATIVE: CASE EVENT DATE: 2018
